FAERS Safety Report 4963022-8 (Version None)
Quarter: 2006Q2

REPORT INFORMATION
  Report Type: 
  Country: None (occurrence: None)
  Receive Date: 20060405
  Receipt Date: 20060328
  Transmission Date: 20061013
  Serious: Yes (Hospitalization)
  Sender: FDA-Public Use
  Company Number: US-JNJFOC-20060307143

PATIENT
  Sex: Female
  Weight: 63.5 kg

DRUGS (4)
  1. ORTHO EVRA [Suspect]
     Indication: OFF LABEL USE
     Route: 062
  2. ORTHO EVRA [Suspect]
     Route: 062
  3. ASTHMA MEDICATION [Concomitant]
     Indication: ASTHMA
  4. FLORINEF [Concomitant]

REACTIONS (2)
  - CONSTIPATION [None]
  - DEHYDRATION [None]
